FAERS Safety Report 4408578-9 (Version None)
Quarter: 2004Q3

REPORT INFORMATION
  Report Type: 
  Country: None (occurrence: None)
  Receive Date: 20040726
  Receipt Date: 20040526
  Transmission Date: 20050211
  Serious: Yes (Life-Threatening, Hospitalization)
  Sender: FDA-Public Use
  Company Number: 2004UW04759

PATIENT
  Age: 55 Year
  Sex: Female
  Weight: 53.5244 kg

DRUGS (3)
  1. CRESTOR [Suspect]
     Indication: HYPERLIPIDAEMIA
     Dosage: 20 MG HS PO
     Route: 048
     Dates: end: 20031101
  2. TRICOR [Concomitant]
     Indication: HYPERLIPIDAEMIA
     Dosage: 160 MG QD PO
     Route: 048
     Dates: start: 20010101, end: 20031101
  3. TRICOR [Suspect]
     Indication: HYPERLIPIDAEMIA
     Dosage: 200 MG

REACTIONS (1)
  - RHABDOMYOLYSIS [None]
